FAERS Safety Report 19980664 (Version 1)
Quarter: 2021Q4

REPORT INFORMATION
  Report Type: Report from Study
  Country: None (occurrence: CO)
  Receive Date: 20211022
  Receipt Date: 20211022
  Transmission Date: 20220303
  Serious: Yes (Hospitalization)
  Sender: FDA-Public Use
  Company Number: CO-ABBVIE-21K-036-4127341-00

PATIENT
  Age: 50 Year
  Sex: Female
  Weight: 57 kg

DRUGS (2)
  1. ZEMPLAR [Suspect]
     Active Substance: PARICALCITOL
     Indication: Hyperparathyroidism secondary
     Route: 048
     Dates: start: 20170217
  2. ZEMPLAR [Suspect]
     Active Substance: PARICALCITOL
     Indication: Chronic kidney disease

REACTIONS (10)
  - Discomfort [Recovering/Resolving]
  - Blood potassium abnormal [Recovered/Resolved]
  - Hypotension [Recovering/Resolving]
  - Hypertension [Recovering/Resolving]
  - Diarrhoea [Recovering/Resolving]
  - Blood potassium abnormal [Recovering/Resolving]
  - Weight decreased [Recovering/Resolving]
  - Discouragement [Recovering/Resolving]
  - Feeling cold [Recovering/Resolving]
  - Adverse food reaction [Unknown]

NARRATIVE: CASE EVENT DATE: 20210101
